FAERS Safety Report 17494722 (Version 1)
Quarter: 2020Q1

REPORT INFORMATION
  Report Type: Spontaneous
  Country: US (occurrence: US)
  Receive Date: 20200303
  Receipt Date: 20200303
  Transmission Date: 20200409
  Serious: No
  Sender: FDA-Public Use
  Company Number: US-AMNEAL PHARMACEUTICALS-2019-AMRX-02254

PATIENT
  Age: 70 Year
  Sex: Female
  Weight: 50 kg

DRUGS (9)
  1. CARBIDOPA-LEVODOPA ER [Suspect]
     Active Substance: CARBIDOPA\LEVODOPA
     Dosage: 2 PILLS FIRST 2 DOSES AND 1 1/2 PILLS FOR THE LAST 2 DOSES AT 5 HOUR INTERVALS
     Route: 065
  2. RYTARY [Suspect]
     Active Substance: CARBIDOPA\LEVODOPA
     Dosage: 48.75/195 MG, 2 CAPSULES, TID
     Route: 065
     Dates: start: 20191003, end: 20191008
  3. CARBIDOPA-LEVODOPA ER [Suspect]
     Active Substance: CARBIDOPA\LEVODOPA
     Indication: PARKINSON^S DISEASE
     Dosage: 1 TABLETS, TID
     Route: 065
  4. ESCITALOPRAM [Concomitant]
     Active Substance: ESCITALOPRAM OXALATE
     Indication: DEPRESSION
     Dosage: 10 MILLIGRAM, 1 /DAY
     Route: 065
  5. CLONOPIN [Concomitant]
     Active Substance: CLONAZEPAM
     Indication: ANXIETY
     Dosage: 1 TABLETS, QD
     Route: 065
  6. RYTARY [Suspect]
     Active Substance: CARBIDOPA\LEVODOPA
     Indication: PARKINSON^S DISEASE
     Dosage: 61.25/245 MG, 2 CAPSULES, TID
     Route: 048
     Dates: start: 20190930, end: 20191003
  7. CLOZAPINE. [Concomitant]
     Active Substance: CLOZAPINE
     Indication: ANXIETY
     Dosage: 0.5 MILLIGRAM, 1 /DAY
     Route: 065
  8. CARBIDOPA-LEVODOPA ER [Suspect]
     Active Substance: CARBIDOPA\LEVODOPA
     Dosage: 2 DOSAGE FORM, QID WITH 4 HOUR INTERVALS
     Route: 065
  9. CARBIDOPA-LEVODOPA ER [Suspect]
     Active Substance: CARBIDOPA\LEVODOPA
     Dosage: 1 AND ? PILLS 4 TIMES A DAY AT 5-HOUR INTERVAL
     Route: 065

REACTIONS (4)
  - Dysgraphia [Recovering/Resolving]
  - Anxiety [Recovering/Resolving]
  - Drug intolerance [Recovering/Resolving]
  - Drug ineffective [Recovering/Resolving]

NARRATIVE: CASE EVENT DATE: 2019
